FAERS Safety Report 9276093 (Version 1)
Quarter: 2013Q2

REPORT INFORMATION
  Report Type: Report from Study
  Country: US (occurrence: US)
  Receive Date: 20130507
  Receipt Date: 20130507
  Transmission Date: 20140414
  Serious: Yes (Hospitalization)
  Sender: FDA-Public Use
  Company Number: US-PFIZER INC-2013134837

PATIENT
  Age: 73 Year
  Sex: Male
  Weight: 59.39 kg

DRUGS (16)
  1. CISPLATIN [Suspect]
     Indication: HEAD AND NECK CANCER METASTATIC
     Dosage: 192 MG, UNK
     Dates: start: 20110301
  2. FLUOROURACIL [Suspect]
     Indication: HEAD AND NECK CANCER METASTATIC
     Dosage: 7680 MG, UNK
     Dates: start: 20110301, end: 20110304
  3. BLINDED THERAPY [Suspect]
     Indication: HEAD AND NECK CANCER METASTATIC
     Dosage: 768 MG, UNK
     Dates: start: 20110301, end: 20110301
  4. PREDNISONE [Concomitant]
     Dosage: UNK
     Dates: start: 20090508
  5. DECADRON [Concomitant]
     Dosage: UNK
     Dates: start: 20110301
  6. BENADRYL [Concomitant]
     Dosage: UNK
     Dates: start: 20110301
  7. ALOXI [Concomitant]
     Dosage: UNK
     Dates: start: 20110301
  8. DILAUDID [Concomitant]
     Dosage: UNK
     Dates: start: 20110225
  9. COMPAZINE [Concomitant]
     Dosage: UNK
     Dates: start: 20110301
  10. GRANISETRON [Concomitant]
     Dosage: UNK
     Dates: start: 20110301
  11. ZOFRAN [Concomitant]
     Dosage: UNK
     Dates: start: 20110301
  12. ZANTAC [Concomitant]
     Dosage: UNK
     Dates: start: 20110301
  13. ARAVA [Concomitant]
     Dosage: UNK
     Dates: start: 20090508
  14. FOLIC ACID [Concomitant]
     Dosage: UNK
     Dates: start: 20080527
  15. LEXAPRO [Concomitant]
     Dosage: UNK
     Dates: start: 20090318
  16. COUMADIN [Concomitant]
     Dosage: UNK
     Dates: start: 20100624

REACTIONS (2)
  - Respiratory distress [Recovered/Resolved]
  - Hypoxia [Recovered/Resolved]
